FAERS Safety Report 10037861 (Version 2)
Quarter: 2014Q1

REPORT INFORMATION
  Report Type: Spontaneous
  Country: US (occurrence: US)
  Receive Date: 20140326
  Receipt Date: 20140326
  Transmission Date: 20141002
  Serious: Yes (Other)
  Sender: FDA-Public Use
  Company Number: US-SA-POMP-1002341

PATIENT
  Age: 54 Year
  Sex: Male

DRUGS (2)
  1. LUMIZYME [Suspect]
     Indication: GLYCOGEN STORAGE DISEASE TYPE II
     Dosage: UNK
     Route: 042
  2. MOTRIN [Concomitant]
     Indication: PREMEDICATION
     Dosage: UNK
     Dates: start: 20120723

REACTIONS (3)
  - Gastric bypass [Unknown]
  - Weight decreased [Unknown]
  - Headache [Unknown]
